FAERS Safety Report 16198319 (Version 2)
Quarter: 2019Q2

REPORT INFORMATION
  Report Type: Report from Study
  Country: US (occurrence: US)
  Receive Date: 20190415
  Receipt Date: 20190531
  Transmission Date: 20190711
  Serious: Yes (Hospitalization)
  Sender: FDA-Public Use
  Company Number: US-ASTELLAS-2019US015843

PATIENT
  Age: 75 Year
  Sex: Male

DRUGS (1)
  1. ENZALUTAMIDE [Suspect]
     Active Substance: ENZALUTAMIDE
     Indication: PROSTATE CANCER
     Route: 048
     Dates: start: 20190312

REACTIONS (4)
  - Chills [Unknown]
  - Arthralgia [Unknown]
  - Intentional dose omission [Unknown]
  - Dry mouth [Unknown]

NARRATIVE: CASE EVENT DATE: 201904
